FAERS Safety Report 9194097 (Version 1)
Quarter: 2013Q1

REPORT INFORMATION
  Report Type: Spontaneous
  Country: ES (occurrence: ES)
  Receive Date: 20130327
  Receipt Date: 20130327
  Transmission Date: 20140127
  Serious: Yes (Hospitalization, Other)
  Sender: FDA-Public Use
  Company Number: ES-ELI_LILLY_AND_COMPANY-ES201303008204

PATIENT
  Age: 78 None
  Sex: Female
  Weight: 66 kg

DRUGS (3)
  1. FORSTEO [Suspect]
     Indication: OSTEOPOROSIS
     Dosage: 20 UG, QD
     Route: 058
     Dates: start: 201004
  2. IBUPROFEN [Concomitant]
     Indication: PAIN
     Dosage: 1 DF, QD
     Route: 048
  3. IRON [Concomitant]
     Indication: IRON DEFICIENCY ANAEMIA
     Dosage: 1 DF, QD
     Route: 048

REACTIONS (3)
  - Device breakage [Recovered/Resolved]
  - Device related infection [Recovered/Resolved with Sequelae]
  - Fall [Unknown]
